FAERS Safety Report 7654994-1 (Version None)
Quarter: 2011Q3

REPORT INFORMATION
  Report Type: 
  Country: None (occurrence: None)
  Receive Date: 20110804
  Receipt Date: 20110801
  Transmission Date: 20111222
  Serious: Yes (Death, Other)
  Sender: FDA-Public Use
  Company Number: PHHY2011AR57986

PATIENT
  Sex: Female

DRUGS (1)
  1. TRILEPTAL [Suspect]
     Indication: TEMPORAL LOBE EPILEPSY
     Dosage: 300 MG, DAILY
     Dates: start: 20101001

REACTIONS (3)
  - METASTASES TO LUNG [None]
  - BREAST CANCER [None]
  - NEOPLASM MALIGNANT [None]
